FAERS Safety Report 6647246-X (Version None)
Quarter: 2010Q1

REPORT INFORMATION
  Report Type: 
  Country: None (occurrence: None)
  Receive Date: 20100323
  Receipt Date: 20100316
  Transmission Date: 20100710
  Serious: Yes (Hospitalization)
  Sender: FDA-Public Use
  Company Number: A0850466A

PATIENT
  Age: 79 Year
  Sex: Female

DRUGS (5)
  1. ADVAIR DISKUS 100/50 [Suspect]
     Indication: CHRONIC OBSTRUCTIVE PULMONARY DISEASE
     Dosage: 1PUFF TWICE PER DAY
     Route: 055
     Dates: start: 20020101, end: 20100315
  2. DUONEB [Suspect]
  3. SPIRIVA [Suspect]
  4. PREDNISONE TAB [Concomitant]
  5. UNKNOWN BLOOD PRESSURE PILL [Concomitant]

REACTIONS (7)
  - CIRCUMORAL OEDEMA [None]
  - LIP SWELLING [None]
  - ORAL DISCOMFORT [None]
  - OROPHARYNGEAL SWELLING [None]
  - SENSORY DISTURBANCE [None]
  - SWELLING FACE [None]
  - TREMOR [None]
